FAERS Safety Report 13351974 (Version 1)
Quarter: 2017Q1

REPORT INFORMATION
  Report Type: Spontaneous
  Country: US (occurrence: US)
  Receive Date: 20170320
  Receipt Date: 20170320
  Transmission Date: 20170429
  Serious: No
  Sender: FDA-Public Use
  Company Number: US-SA-2016SA047986

PATIENT
  Sex: Female

DRUGS (2)
  1. NASACORT ALLERGY 24HR [Suspect]
     Active Substance: TRIAMCINOLONE ACETONIDE
     Indication: NASAL CONGESTION
     Dosage: STARTED 2 WEEKS AGO. 1 NASAL SPRAY IN MORNING AND ONE NASAL SPRAY IN EVENING.
     Route: 045
  2. NASACORT ALLERGY 24HR [Suspect]
     Active Substance: TRIAMCINOLONE ACETONIDE
     Indication: HYPERSENSITIVITY
     Dosage: STARTED 2 WEEKS AGO. 1 NASAL SPRAY IN MORNING AND ONE NASAL SPRAY IN EVENING.
     Route: 045

REACTIONS (5)
  - Inappropriate schedule of drug administration [Unknown]
  - Drug ineffective [Unknown]
  - Flushing [Recovering/Resolving]
  - Erythema [Recovering/Resolving]
  - Nasal congestion [Recovering/Resolving]
